FAERS Safety Report 7038367-0 (Version None)
Quarter: 2010Q4

REPORT INFORMATION
  Report Type: 
  Country: None (occurrence: None)
  Receive Date: 20101011
  Receipt Date: 20090910
  Transmission Date: 20110411
  Serious: Yes (Other)
  Sender: FDA-Public Use
  Company Number: US-PFIZER INC-2009267947

PATIENT

DRUGS (1)
  1. GABAPENTIN [Suspect]
     Indication: PAIN
     Dosage: 300 MG, UNK
     Dates: start: 20080501

REACTIONS (2)
  - FALL [None]
  - FRACTURE [None]
